FAERS Safety Report 11427148 (Version 1)
Quarter: 2015Q3

REPORT INFORMATION
  Report Type: Spontaneous
  Country: US (occurrence: None)
  Receive Date: 20150827
  Receipt Date: 20150827
  Transmission Date: 20151125
  Serious: Yes (Death)
  Sender: FDA-Public Use
  Company Number: None

PATIENT
  Age: 50 Year
  Sex: Female

DRUGS (1)
  1. GATTEX [Suspect]
     Active Substance: TEDUGLUTIDE\WATER
     Indication: MALABSORPTION
     Route: 058
     Dates: start: 20150319

REACTIONS (3)
  - Decreased appetite [None]
  - Fatigue [None]
  - Contusion [None]

NARRATIVE: CASE EVENT DATE: 20150815
